FAERS Safety Report 26135748 (Version 2)
Quarter: 2025Q4

REPORT INFORMATION
  Report Type: Spontaneous
  Country: BR (occurrence: BR)
  Receive Date: 20251209
  Receipt Date: 20251218
  Transmission Date: 20260118
  Serious: Yes (Other)
  Sender: PFIZER
  Company Number: BR-PFIZER INC-PV202500143339

PATIENT
  Age: 67 Year
  Sex: Female

DRUGS (1)
  1. TALIGLUCERASE ALFA [Suspect]
     Active Substance: TALIGLUCERASE ALFA
     Indication: Gaucher^s disease
     Dosage: 14 VIALS OF 200 IU/KG - EVERY 15 DAYS
     Dates: start: 20180618

REACTIONS (2)
  - Bacterial infection [Unknown]
  - Product dose omission issue [Unknown]
